FAERS Safety Report 22248788 (Version 2)
Quarter: 2023Q2

REPORT INFORMATION
  Report Type: Other
  Country: US (occurrence: None)
  Receive Date: 20230425
  Receipt Date: 20230609
  Transmission Date: 20230722
  Serious: Yes (Other)
  Sender: FDA-Public Use
  Company Number: US-ROCHE-3296382

PATIENT
  Age: 60 Year
  Sex: Female

DRUGS (4)
  1. ACTEMRA [Suspect]
     Active Substance: TOCILIZUMAB
     Indication: Neuromyelitis optica spectrum disorder
     Dosage: INJECT 0.9ML (162MG TOTAL) SUBCUTANEOUSLY EVERY OTHER WEEK
     Route: 058
  2. ACTEMRA [Suspect]
     Active Substance: TOCILIZUMAB
     Indication: Papilloedema
  3. ACTEMRA [Suspect]
     Active Substance: TOCILIZUMAB
     Indication: Hypotension
  4. ACTEMRA [Suspect]
     Active Substance: TOCILIZUMAB
     Indication: Plantar fascial fibromatosis

REACTIONS (19)
  - Back pain [Unknown]
  - Pain [Unknown]
  - Dyspnoea [Unknown]
  - Abdominal pain upper [Unknown]
  - Diverticulitis [Unknown]
  - Alopecia [Unknown]
  - Dry skin [Unknown]
  - Dry mouth [Unknown]
  - Pruritus [Unknown]
  - Malaise [Unknown]
  - Off label use [Unknown]
  - Pancreatic enzymes increased [Unknown]
  - Blood glucose increased [Unknown]
  - Blood pressure measurement [Unknown]
  - Pain in extremity [Unknown]
  - Peripheral swelling [Unknown]
  - Nausea [Unknown]
  - Fatigue [Unknown]
  - Drug ineffective [Unknown]
